FAERS Safety Report 8181623 (Version 4)
Quarter: 2016Q4

REPORT INFORMATION
  Report Type: Report from Study
  Country: FR (occurrence: FR)
  Receive Date: 20111014
  Receipt Date: 20161003
  Transmission Date: 20170207
  Serious: Yes (Hospitalization)
  Sender: FDA-Public Use
  Company Number: FR-GLAXOSMITHKLINE-Z0009277A

PATIENT
  Age: 54 Year
  Sex: Female
  Weight: 68 kg

DRUGS (4)
  1. TYKERB [Suspect]
     Active Substance: LAPATINIB DITOSYLATE
     Indication: BREAST CANCER METASTATIC
     Dosage: 1250 MG, QD
     Route: 048
     Dates: start: 20100204
  2. DIGOXIN. [Concomitant]
     Active Substance: DIGOXIN
     Indication: VENTRICULAR DYSFUNCTION
     Dosage: 0.25 MG, OT
     Route: 048
     Dates: start: 20110413
  3. FUROSEMIDE. [Concomitant]
     Active Substance: FUROSEMIDE
     Indication: LEFT VENTRICULAR DYSFUNCTION
     Route: 048
     Dates: start: 20110413
  4. CAPECITABINE. [Suspect]
     Active Substance: CAPECITABINE
     Indication: BREAST CANCER METASTATIC
     Route: 048
     Dates: start: 20100204

REACTIONS (1)
  - Gastrooesophageal reflux disease [Recovered/Resolved]

NARRATIVE: CASE EVENT DATE: 20110429
